FAERS Safety Report 11503897 (Version 1)
Quarter: 2015Q3

REPORT INFORMATION
  Report Type: Spontaneous
  Country: US (occurrence: US)
  Receive Date: 20150914
  Receipt Date: 20150914
  Transmission Date: 20151125
  Serious: Yes (Congenital Anomaly, Other)
  Sender: FDA-Public Use
  Company Number: US-PFIZER INC-2015303527

PATIENT

DRUGS (5)
  1. ZOLOFT [Suspect]
     Active Substance: SERTRALINE HYDROCHLORIDE
     Dosage: 100 MG, DAILY
     Route: 064
     Dates: start: 20051024
  2. ZOLOFT [Suspect]
     Active Substance: SERTRALINE HYDROCHLORIDE
     Indication: PANIC DISORDER
     Dosage: 50 MG (100 MG HALF TABLET ), 1X/DAY
     Route: 064
     Dates: start: 20040326
  3. ZOLOFT [Suspect]
     Active Substance: SERTRALINE HYDROCHLORIDE
     Dosage: 150 MG (100 MG ONE AND HALF TABLET), DAILY
     Route: 064
     Dates: start: 20090709
  4. ZOLOFT [Suspect]
     Active Substance: SERTRALINE HYDROCHLORIDE
     Dosage: 100 MG, 1X/DAY (EVERY NIGHT AT BED TIME)
     Route: 064
     Dates: start: 20040706
  5. SERTRALINE HCL [Suspect]
     Active Substance: SERTRALINE HYDROCHLORIDE
     Indication: PANIC DISORDER
     Dosage: 50 MG, DAILY
     Route: 064
     Dates: start: 20090618

REACTIONS (2)
  - Congenital anomaly [Unknown]
  - Maternal exposure during pregnancy [Unknown]
